FAERS Safety Report 5946967-1 (Version None)
Quarter: 2008Q4

REPORT INFORMATION
  Report Type: 
  Country: None (occurrence: None)
  Receive Date: 20081107
  Receipt Date: 20081107
  Transmission Date: 20090506
  Serious: Yes (Hospitalization)
  Sender: FDA-Public Use
  Company Number: None

PATIENT
  Sex: Male
  Weight: 84.5 kg

DRUGS (2)
  1. CARBOPLATIN [Suspect]
     Dosage: 1558.2 MG
  2. TAXOL [Suspect]
     Dosage: 542.7 MG

REACTIONS (20)
  - ABDOMINAL PAIN UPPER [None]
  - BLOOD CHLORIDE DECREASED [None]
  - BLOOD GLUCOSE INCREASED [None]
  - BLOOD SODIUM DECREASED [None]
  - BLOOD UREA DECREASED [None]
  - BURNING SENSATION [None]
  - DEHYDRATION [None]
  - GRANULOMA [None]
  - HAEMATOCRIT DECREASED [None]
  - HAEMOGLOBIN DECREASED [None]
  - HYPOPHAGIA [None]
  - LUNG NEOPLASM MALIGNANT [None]
  - MUCOSAL INFLAMMATION [None]
  - NAUSEA [None]
  - ODYNOPHAGIA [None]
  - OESOPHAGEAL CANDIDIASIS [None]
  - PRODUCTIVE COUGH [None]
  - PYREXIA [None]
  - THERAPEUTIC AGENT TOXICITY [None]
  - VOMITING [None]
